FAERS Safety Report 9011718 (Version 1)
Quarter: 2013Q1

REPORT INFORMATION
  Report Type: Spontaneous
  Country: US (occurrence: US)
  Receive Date: 20130114
  Receipt Date: 20130114
  Transmission Date: 20140127
  Serious: Yes (Other)
  Sender: FDA-Public Use
  Company Number: US-009507513-0907USA03698

PATIENT
  Age: 23 Year
  Sex: Male
  Weight: 65.77 kg

DRUGS (1)
  1. SINGULAIR [Suspect]
     Indication: ASTHMA EXERCISE INDUCED
     Dosage: 1-10 MG PILL DAILY PO ORAL
     Route: 048
     Dates: start: 20080702, end: 20080918

REACTIONS (4)
  - Suicidal ideation [Unknown]
  - Depression [Unknown]
  - Irritability [Unknown]
  - Migraine [Unknown]
